FAERS Safety Report 22334075 (Version 5)
Quarter: 2023Q4

REPORT INFORMATION
  Report Type: Report from Study
  Country: US (occurrence: US)
  Receive Date: 20230517
  Receipt Date: 20231025
  Transmission Date: 20240109
  Serious: No
  Sender: FDA-Public Use
  Company Number: US-002147023-NVSC2023US110825

PATIENT
  Age: 65 Year
  Sex: Female

DRUGS (2)
  1. ENTRESTO [Suspect]
     Active Substance: SACUBITRIL\VALSARTAN
     Indication: Cardiac failure
     Dosage: 24.26 MG, BID
     Route: 048
     Dates: start: 202303
  2. FARXIGA [Concomitant]
     Active Substance: DAPAGLIFLOZIN PROPANEDIOL
     Indication: Product used for unknown indication
     Dosage: UNK
     Route: 065
     Dates: start: 202303

REACTIONS (12)
  - Arthritis [Not Recovered/Not Resolved]
  - Arthralgia [Recovered/Resolved]
  - Mood swings [Recovered/Resolved]
  - Pain [Unknown]
  - Feeling abnormal [Unknown]
  - Chest pain [Recovered/Resolved]
  - Weight decreased [Recovering/Resolving]
  - Tendonitis [Unknown]
  - Ligament rupture [Unknown]
  - Hyperhidrosis [Unknown]
  - Asthenia [Recovering/Resolving]
  - Product dose omission in error [Unknown]

NARRATIVE: CASE EVENT DATE: 20230301
